FAERS Safety Report 11544877 (Version 1)
Quarter: 2015Q3

REPORT INFORMATION
  Report Type: Spontaneous
  Country: US (occurrence: None)
  Receive Date: 20150923
  Receipt Date: 20150923
  Transmission Date: 20151125
  Serious: Yes (Other)
  Sender: FDA-Public Use
  Company Number: None

PATIENT
  Age: 7 Year
  Sex: Female
  Weight: 38.4 kg

DRUGS (1)
  1. CONCERTA [Suspect]
     Active Substance: METHYLPHENIDATE HYDROCHLORIDE
     Indication: ATTENTION DEFICIT/HYPERACTIVITY DISORDER
     Dosage: 1 TAB
     Route: 048
     Dates: start: 20150919, end: 20150919

REACTIONS (4)
  - Initial insomnia [None]
  - Dysphemia [None]
  - Heart rate increased [None]
  - Irritability [None]

NARRATIVE: CASE EVENT DATE: 20150919
